FAERS Safety Report 4974021-4 (Version None)
Quarter: 2006Q2

REPORT INFORMATION
  Report Type: 
  Country: None (occurrence: None)
  Receive Date: 20060410
  Receipt Date: 20060328
  Transmission Date: 20061013
  Serious: Yes (Hospitalization)
  Sender: FDA-Public Use
  Company Number: B0419108A

PATIENT
  Age: 55 Year
  Sex: Male

DRUGS (2)
  1. ZANTAC 150 [Suspect]
     Indication: DRUG USE FOR UNKNOWN INDICATION
  2. RANITIDINE HYDROCHLORIDE [Suspect]
     Indication: DRUG USE FOR UNKNOWN INDICATION

REACTIONS (4)
  - ANAPHYLACTIC REACTION [None]
  - BLOOD IMMUNOGLOBULIN E INCREASED [None]
  - DRUG HYPERSENSITIVITY [None]
  - SKIN TEST POSITIVE [None]
